FAERS Safety Report 24018885 (Version 1)
Quarter: 2024Q2

REPORT INFORMATION
  Report Type: Spontaneous
  Country: US (occurrence: US)
  Receive Date: 20240627
  Receipt Date: 20240627
  Transmission Date: 20240716
  Serious: No
  Sender: FDA-Public Use
  Company Number: US-SANOFI-02104419

PATIENT
  Age: 77 Year
  Sex: Female

DRUGS (2)
  1. TOUJEO MAX [Suspect]
     Active Substance: INSULIN GLARGINE
     Indication: Type 2 diabetes mellitus
     Dosage: 30 U, QD
     Route: 065
     Dates: start: 202402
  2. OZEMPIC [Suspect]
     Active Substance: SEMAGLUTIDE
     Dosage: UNK
     Dates: start: 202401

REACTIONS (7)
  - Gastrointestinal disorder [Unknown]
  - Nausea [Unknown]
  - Abdominal pain upper [Unknown]
  - Dyspepsia [Unknown]
  - Constipation [Unknown]
  - Glycosylated haemoglobin increased [Unknown]
  - Injection site pain [Unknown]

NARRATIVE: CASE EVENT DATE: 20240101
